FAERS Safety Report 18796655 (Version 1)
Quarter: 2021Q1

REPORT INFORMATION
  Report Type: Spontaneous
  Country: US (occurrence: US)
  Receive Date: 20210127
  Receipt Date: 20210127
  Transmission Date: 20210419
  Serious: Yes (Other)
  Sender: FDA-Public Use
  Company Number: US-ENDO PHARMACEUTICALS INC-2020-006097

PATIENT
  Sex: Female

DRUGS (3)
  1. PERCOCET [Suspect]
     Active Substance: ACETAMINOPHEN\OXYCODONE HYDROCHLORIDE
     Indication: PRODUCT USED FOR UNKNOWN INDICATION
     Dosage: UP TO 15 MG, QID
     Route: 065
  2. TRAMADOL. [Suspect]
     Active Substance: TRAMADOL
     Indication: PRODUCT USED FOR UNKNOWN INDICATION
     Dosage: UP TO 100 MG, QID
     Route: 065
  3. OXYCODONE [Suspect]
     Active Substance: OXYCODONE
     Indication: PRODUCT USED FOR UNKNOWN INDICATION
     Dosage: UP TO 15 MG, QID
     Route: 065

REACTIONS (6)
  - Dependence [Unknown]
  - Insomnia [Unknown]
  - Personality change [Unknown]
  - Depression [Unknown]
  - Emotional disorder [Unknown]
  - Disturbance in attention [Unknown]

NARRATIVE: CASE EVENT DATE: 200203
